FAERS Safety Report 18531779 (Version 2)
Quarter: 2021Q1

REPORT INFORMATION
  Report Type: Report from Study
  Country: US (occurrence: US)
  Receive Date: 20201123
  Receipt Date: 20210112
  Transmission Date: 20210419
  Serious: Yes (Hospitalization, Other)
  Sender: FDA-Public Use
  Company Number: US-ROCHE-2520776

PATIENT
  Age: 77 Year
  Sex: Male
  Weight: 86.1 kg

DRUGS (5)
  1. RAMIPRIL. [Suspect]
     Active Substance: RAMIPRIL
     Indication: PRODUCT USED FOR UNKNOWN INDICATION
     Route: 065
  2. ERIBULIN MESYLATE [Suspect]
     Active Substance: ERIBULIN MESYLATE
     Indication: TRANSITIONAL CELL CARCINOMA
     Dosage: OVER 2?3 MINUTES ON DAYS 1 AND 8?MOST RECENT DOSE 03/JAN/2020
     Route: 042
     Dates: start: 20190116
  3. ATENOLOL. [Suspect]
     Active Substance: ATENOLOL
     Indication: PRODUCT USED FOR UNKNOWN INDICATION
     Route: 065
  4. TAMSULOSIN [Suspect]
     Active Substance: TAMSULOSIN
     Indication: PRODUCT USED FOR UNKNOWN INDICATION
     Route: 065
  5. ATEZOLIZUMAB. [Suspect]
     Active Substance: ATEZOLIZUMAB
     Indication: TRANSITIONAL CELL CARCINOMA
     Dosage: OVER 60 MINUTES ON DAY 1?MOST RECENT DOSE 03/JAN/2020
     Route: 041
     Dates: start: 20190116

REACTIONS (3)
  - Neutrophil count decreased [Unknown]
  - Syncope [Recovered/Resolved]
  - Rash maculo-papular [Unknown]

NARRATIVE: CASE EVENT DATE: 20200106
